FAERS Safety Report 7917997-5 (Version None)
Quarter: 2011Q4

REPORT INFORMATION
  Report Type: 
  Country: None (occurrence: None)
  Receive Date: 20111116
  Receipt Date: 20111108
  Transmission Date: 20120403
  Serious: Yes (Other)
  Sender: FDA-Public Use
  Company Number: US-ABBOTT-11P-163-0872320-00

PATIENT
  Sex: Male

DRUGS (1)
  1. HUMIRA [Suspect]
     Indication: SPONDYLITIS
     Dates: start: 20090101

REACTIONS (6)
  - HIP SURGERY [None]
  - IMPAIRED HEALING [None]
  - OFF LABEL USE [None]
  - SPONDYLITIS [None]
  - SHOULDER OPERATION [None]
  - LEUKOCYTE ANTIGEN B-27 POSITIVE [None]
